FAERS Safety Report 24743583 (Version 1)
Quarter: 2024Q4

REPORT INFORMATION
  Report Type: Spontaneous
  Country: US (occurrence: None)
  Receive Date: 20241216
  Receipt Date: 20241216
  Transmission Date: 20250115
  Serious: Yes (Hospitalization, Other)
  Sender: Public
  Company Number: None

PATIENT
  Age: 57 Year
  Sex: 0
  Weight: 95.85 kg

DRUGS (1)
  1. MOUNJARO [Suspect]
     Active Substance: TIRZEPATIDE

REACTIONS (4)
  - Chills [None]
  - Urticaria [None]
  - Pruritus [None]
  - Adverse drug reaction [None]

NARRATIVE: CASE EVENT DATE: 20241126
